FAERS Safety Report 19429765 (Version 1)
Quarter: 2021Q2

REPORT INFORMATION
  Report Type: Spontaneous
  Country: TR (occurrence: TR)
  Receive Date: 20210617
  Receipt Date: 20210617
  Transmission Date: 20210717
  Serious: Yes (Hospitalization, Other)
  Sender: FDA-Public Use
  Company Number: TR-PFIZER INC-2021477482

PATIENT
  Age: 60 Year
  Sex: Male

DRUGS (1)
  1. SUNITINIB MALATE. [Suspect]
     Active Substance: SUNITINIB MALATE
     Indication: RENAL CANCER METASTATIC
     Dosage: 50 MG, 1X/DAY (TREATMENT PLAN WAS 2 WEEKS ON AND 1 WEEK OFF)

REACTIONS (3)
  - Neurotoxicity [Recovering/Resolving]
  - Peripheral motor neuropathy [Recovering/Resolving]
  - Hepatotoxicity [Unknown]
